FAERS Safety Report 6439083-6 (Version None)
Quarter: 2009Q4

REPORT INFORMATION
  Report Type: 
  Country: None (occurrence: None)
  Receive Date: 20091113
  Receipt Date: 20091102
  Transmission Date: 20100525
  Serious: Yes (Disabling)
  Sender: FDA-Public Use
  Company Number: US-WYE-H10478209

PATIENT
  Sex: Female
  Weight: 52.66 kg

DRUGS (7)
  1. RELISTOR [Suspect]
     Indication: CONSTIPATION
     Dosage: 0.4 MG, FREQUENCY UNSPECIFIED
     Route: 030
     Dates: start: 20090804, end: 20090804
  2. TYLENOL W/ CODEINE NO. 3 [Concomitant]
     Indication: PROCEDURAL PAIN
     Dosage: UNSPECIFIED
     Route: 065
  3. PERI-COLACE [Suspect]
     Dosage: UNSPECIFIED
     Route: 065
  4. FLECAINIDE ACETATE [Concomitant]
     Indication: SUPRAVENTRICULAR TACHYCARDIA
     Dosage: UNSPECIFIED
     Route: 065
  5. DULCOLAX [Suspect]
     Dosage: UNSPECIFIED
     Route: 054
     Dates: start: 20090804, end: 20090804
  6. CARDIZEM [Concomitant]
     Indication: SUPRAVENTRICULAR TACHYCARDIA
     Dosage: UNSPECIFIED
     Route: 065
  7. COLACE [Concomitant]
     Dosage: UNSPECIFIED
     Route: 065

REACTIONS (3)
  - ABDOMINAL DISTENSION [None]
  - ABDOMINAL PAIN [None]
  - DIARRHOEA [None]
